FAERS Safety Report 13843622 (Version 1)
Quarter: 2017Q3

REPORT INFORMATION
  Report Type: Spontaneous
  Country: FR (occurrence: FR)
  Receive Date: 20170808
  Receipt Date: 20170808
  Transmission Date: 20171127
  Serious: Yes (Hospitalization)
  Sender: FDA-Public Use
  Company Number: FR-PFIZER INC-2017333219

PATIENT
  Age: 60 Year
  Sex: Male

DRUGS (9)
  1. LAMALINE [Concomitant]
     Active Substance: ACETAMINOPHEN\CAFFEINE\OPIUM
     Dosage: 1 DF, AS NEEDED
  2. CARMUSTINE [Concomitant]
     Active Substance: CARMUSTINE
     Indication: CENTRAL NERVOUS SYSTEM LYMPHOMA
  3. METHOTREXATE (METHOTREXATE SODIUM) [Suspect]
     Active Substance: METHOTREXATE SODIUM
     Indication: CENTRAL NERVOUS SYSTEM LYMPHOMA
     Dosage: 5500 MG, SINGLE
     Route: 042
     Dates: start: 20170623, end: 20170623
  4. ETOPOSIDE MYLAN [Suspect]
     Active Substance: ETOPOSIDE
     Indication: CENTRAL NERVOUS SYSTEM LYMPHOMA
     Dosage: 184 MG, SINGLE
     Route: 042
     Dates: start: 20170624, end: 20170624
  5. PREDNISONE. [Concomitant]
     Active Substance: PREDNISONE
     Indication: CHEMOTHERAPY
     Dosage: 40 MG, 1X/DAY
  6. VORAXAZE [Suspect]
     Active Substance: GLUCARPIDASE
     Indication: ACCIDENTAL OVERDOSE
     Dosage: 50 IU/KG, SINGLE
     Route: 042
     Dates: start: 20170625, end: 20170625
  7. MABTHERA [Suspect]
     Active Substance: RITUXIMAB
     Indication: CENTRAL NERVOUS SYSTEM LYMPHOMA
     Dosage: 690 MG, SINGLE
     Route: 042
     Dates: start: 20170623, end: 20170623
  8. METHYLPREDNISOLONE. [Concomitant]
     Active Substance: METHYLPREDNISOLONE
     Indication: CENTRAL NERVOUS SYSTEM LYMPHOMA
  9. ARACYTINE [Suspect]
     Active Substance: CYTARABINE
     Indication: CENTRAL NERVOUS SYSTEM LYMPHOMA
     Dosage: 1.5 MG/M2, CYCLIC
     Route: 042
     Dates: start: 20170704, end: 20170704

REACTIONS (1)
  - Hepatocellular injury [Not Recovered/Not Resolved]

NARRATIVE: CASE EVENT DATE: 20170629
